FAERS Safety Report 13068632 (Version 1)
Quarter: 2016Q4

REPORT INFORMATION
  Report Type: Spontaneous
  Country: US (occurrence: US)
  Receive Date: 20161228
  Receipt Date: 20161228
  Transmission Date: 20170207
  Serious: Yes (Other)
  Sender: FDA-Public Use
  Company Number: US-SA-2016SA235395

PATIENT
  Age: 70 Year
  Sex: Female
  Weight: 81.64 kg

DRUGS (9)
  1. DIOVAN [Concomitant]
     Active Substance: VALSARTAN
     Route: 048
     Dates: start: 20160810
  2. DIPHENHYDRAMINE. [Concomitant]
     Active Substance: DIPHENHYDRAMINE
     Dosage: DOSE:50 MILLIGRAM(S)/MILLILITRE
     Route: 042
     Dates: start: 20161206
  3. SOLU-CORTEF [Concomitant]
     Active Substance: HYDROCORTISONE SODIUM SUCCINATE
     Route: 042
     Dates: start: 20161206
  4. FOLIC ACID. [Concomitant]
     Active Substance: FOLIC ACID
     Route: 048
     Dates: start: 20161019
  5. NORMAL SALINE [Concomitant]
     Active Substance: SODIUM CHLORIDE
     Indication: FLUSHING
     Route: 042
     Dates: start: 20161206
  6. CEREZYME [Suspect]
     Active Substance: IMIGLUCERASE
     Indication: LIPIDOSIS
     Dosage: DOSE:48.99 UNIT(S)/KILOGRAM BODYWEIGHT
     Route: 041
     Dates: start: 19941018
  7. CALCIUM D [Concomitant]
     Active Substance: CALCIUM\VITAMIN D
     Route: 048
     Dates: start: 20140113
  8. VITAMIN D3 [Concomitant]
     Active Substance: CHOLECALCIFEROL
     Dosage: DOSE:5000 UNIT(S)
     Route: 048
     Dates: start: 20140113
  9. EPIPEN [Concomitant]
     Active Substance: EPINEPHRINE
     Route: 030
     Dates: start: 20161206

REACTIONS (1)
  - Polyneuropathy [Unknown]
